FAERS Safety Report 15296362 (Version 3)
Quarter: 2018Q4

REPORT INFORMATION
  Report Type: Spontaneous
  Country: JP (occurrence: JP)
  Receive Date: 20180820
  Receipt Date: 20181112
  Transmission Date: 20190204
  Serious: Yes (Death, Other)
  Sender: FDA-Public Use
  Company Number: JP-PFIZER INC-2018331224

PATIENT
  Age: 71 Year
  Sex: Female
  Weight: 31 kg

DRUGS (3)
  1. EFFEXOR [Suspect]
     Active Substance: VENLAFAXINE HYDROCHLORIDE
     Dosage: 75 MG, DAILY
     Route: 048
     Dates: start: 20180729, end: 20180803
  2. EFFEXOR [Suspect]
     Active Substance: VENLAFAXINE HYDROCHLORIDE
     Indication: DEPRESSION
     Dosage: 37.5 MG, DAILY
     Route: 048
     Dates: start: 20180721, end: 20180728
  3. EFFEXOR [Suspect]
     Active Substance: VENLAFAXINE HYDROCHLORIDE
     Dosage: 150 MG, DAILY
     Route: 048
     Dates: start: 20180804, end: 20180813

REACTIONS (4)
  - Hepatitis fulminant [Fatal]
  - Pancytopenia [Unknown]
  - Hepatic function abnormal [Not Recovered/Not Resolved]
  - Pulmonary fibrosis [Not Recovered/Not Resolved]

NARRATIVE: CASE EVENT DATE: 2018
